FAERS Safety Report 11806517 (Version 1)
Quarter: 2015Q4

REPORT INFORMATION
  Report Type: Spontaneous
  Country: US (occurrence: US)
  Receive Date: 20151207
  Receipt Date: 20151207
  Transmission Date: 20160305
  Serious: No
  Sender: FDA-Public Use
  Company Number: US-GLAXOSMITHKLINE-US2015168738

PATIENT
  Sex: Male

DRUGS (1)
  1. VENTOLIN HFA [Suspect]
     Active Substance: ALBUTEROL SULFATE
     Indication: COUGH
     Dosage: 4 PUFF(S), PRN (EVERY 4 HOURS AS NEEDED)
     Route: 055
     Dates: start: 201504

REACTIONS (2)
  - Prescribed overdose [Unknown]
  - Device use error [Unknown]
